FAERS Safety Report 25234447 (Version 1)
Quarter: 2025Q2

REPORT INFORMATION
  Report Type: Spontaneous
  Country: US (occurrence: US)
  Receive Date: 20250424
  Receipt Date: 20250424
  Transmission Date: 20250717
  Serious: Yes (Hospitalization, Other)
  Sender: MYLAN
  Company Number: US-MYLANLABS-2025M1034419

PATIENT
  Age: 73 Year
  Sex: Female

DRUGS (56)
  1. MESALAMINE [Suspect]
     Active Substance: MESALAMINE
     Indication: Colitis microscopic
     Dosage: 1.6 GRAM, QD
  2. MESALAMINE [Suspect]
     Active Substance: MESALAMINE
     Dosage: 1.6 GRAM, QD
     Route: 065
  3. MESALAMINE [Suspect]
     Active Substance: MESALAMINE
     Dosage: 1.6 GRAM, QD
     Route: 065
  4. MESALAMINE [Suspect]
     Active Substance: MESALAMINE
     Dosage: 1.6 GRAM, QD
  5. BUDESONIDE [Suspect]
     Active Substance: BUDESONIDE
     Indication: Colitis microscopic
     Dosage: 9 MILLIGRAM, QD
  6. BUDESONIDE [Suspect]
     Active Substance: BUDESONIDE
     Dosage: 9 MILLIGRAM, QD
  7. BUDESONIDE [Suspect]
     Active Substance: BUDESONIDE
     Dosage: 9 MILLIGRAM, QD
     Route: 048
  8. BUDESONIDE [Suspect]
     Active Substance: BUDESONIDE
     Dosage: 9 MILLIGRAM, QD
     Route: 048
  9. BUDESONIDE [Suspect]
     Active Substance: BUDESONIDE
  10. BUDESONIDE [Suspect]
     Active Substance: BUDESONIDE
  11. BUDESONIDE [Suspect]
     Active Substance: BUDESONIDE
     Route: 048
  12. BUDESONIDE [Suspect]
     Active Substance: BUDESONIDE
     Route: 048
  13. BUDESONIDE [Suspect]
     Active Substance: BUDESONIDE
     Dosage: 9 MILLIGRAM, QD, (ON DAY 0)
  14. BUDESONIDE [Suspect]
     Active Substance: BUDESONIDE
     Dosage: 9 MILLIGRAM, QD, (ON DAY 0)
  15. BUDESONIDE [Suspect]
     Active Substance: BUDESONIDE
     Dosage: 9 MILLIGRAM, QD, (ON DAY 0)
     Route: 048
  16. BUDESONIDE [Suspect]
     Active Substance: BUDESONIDE
     Dosage: 9 MILLIGRAM, QD, (ON DAY 0)
     Route: 048
  17. BUDESONIDE [Suspect]
     Active Substance: BUDESONIDE
     Dosage: 6 MILLIGRAM, QD,  (ON DAY 1)
  18. BUDESONIDE [Suspect]
     Active Substance: BUDESONIDE
     Dosage: 6 MILLIGRAM, QD,  (ON DAY 1)
  19. BUDESONIDE [Suspect]
     Active Substance: BUDESONIDE
     Dosage: 6 MILLIGRAM, QD,  (ON DAY 1)
     Route: 048
  20. BUDESONIDE [Suspect]
     Active Substance: BUDESONIDE
     Dosage: 6 MILLIGRAM, QD,  (ON DAY 1)
     Route: 048
  21. BUDESONIDE [Suspect]
     Active Substance: BUDESONIDE
     Dosage: 3 MILLIGRAM, QD, (ON DAY 7) AND ON DAY?14,?BUDESONIDE WAS STOPPED
  22. BUDESONIDE [Suspect]
     Active Substance: BUDESONIDE
     Dosage: 3 MILLIGRAM, QD, (ON DAY 7) AND ON DAY?14,?BUDESONIDE WAS STOPPED
     Route: 048
  23. BUDESONIDE [Suspect]
     Active Substance: BUDESONIDE
     Dosage: 3 MILLIGRAM, QD, (ON DAY 7) AND ON DAY?14,?BUDESONIDE WAS STOPPED
  24. BUDESONIDE [Suspect]
     Active Substance: BUDESONIDE
     Dosage: 3 MILLIGRAM, QD, (ON DAY 7) AND ON DAY?14,?BUDESONIDE WAS STOPPED
     Route: 048
  25. LAMOTRIGINE [Concomitant]
     Active Substance: LAMOTRIGINE
     Indication: Bipolar I disorder
     Dosage: 150 MILLIGRAM, QD
     Route: 065
  26. LAMOTRIGINE [Concomitant]
     Active Substance: LAMOTRIGINE
     Dosage: 150 MILLIGRAM, QD
  27. LAMOTRIGINE [Concomitant]
     Active Substance: LAMOTRIGINE
     Dosage: 150 MILLIGRAM, QD
  28. LAMOTRIGINE [Concomitant]
     Active Substance: LAMOTRIGINE
     Dosage: 150 MILLIGRAM, QD
     Route: 065
  29. LAMOTRIGINE [Concomitant]
     Active Substance: LAMOTRIGINE
     Route: 065
  30. LAMOTRIGINE [Concomitant]
     Active Substance: LAMOTRIGINE
  31. LAMOTRIGINE [Concomitant]
     Active Substance: LAMOTRIGINE
  32. LAMOTRIGINE [Concomitant]
     Active Substance: LAMOTRIGINE
     Route: 065
  33. MIRTAZAPINE [Concomitant]
     Active Substance: MIRTAZAPINE
     Indication: Bipolar I disorder
     Dosage: 15 MILLIGRAM, QD
     Route: 065
  34. MIRTAZAPINE [Concomitant]
     Active Substance: MIRTAZAPINE
     Dosage: 15 MILLIGRAM, QD
  35. MIRTAZAPINE [Concomitant]
     Active Substance: MIRTAZAPINE
     Dosage: 15 MILLIGRAM, QD
  36. MIRTAZAPINE [Concomitant]
     Active Substance: MIRTAZAPINE
     Dosage: 15 MILLIGRAM, QD
     Route: 065
  37. MIRTAZAPINE [Concomitant]
     Active Substance: MIRTAZAPINE
     Route: 065
  38. MIRTAZAPINE [Concomitant]
     Active Substance: MIRTAZAPINE
  39. MIRTAZAPINE [Concomitant]
     Active Substance: MIRTAZAPINE
  40. MIRTAZAPINE [Concomitant]
     Active Substance: MIRTAZAPINE
     Route: 065
  41. QUETIAPINE [Concomitant]
     Active Substance: QUETIAPINE
     Indication: Bipolar I disorder
     Dosage: 200 MILLIGRAM, QD
     Route: 065
  42. QUETIAPINE [Concomitant]
     Active Substance: QUETIAPINE
     Dosage: 200 MILLIGRAM, QD
  43. QUETIAPINE [Concomitant]
     Active Substance: QUETIAPINE
     Dosage: 200 MILLIGRAM, QD
  44. QUETIAPINE [Concomitant]
     Active Substance: QUETIAPINE
     Dosage: 200 MILLIGRAM, QD
     Route: 065
  45. QUETIAPINE [Concomitant]
     Active Substance: QUETIAPINE
     Route: 065
  46. QUETIAPINE [Concomitant]
     Active Substance: QUETIAPINE
  47. QUETIAPINE [Concomitant]
     Active Substance: QUETIAPINE
  48. QUETIAPINE [Concomitant]
     Active Substance: QUETIAPINE
     Route: 065
  49. GABAPENTIN [Concomitant]
     Active Substance: GABAPENTIN
     Indication: Bipolar I disorder
     Dosage: 300 MILLIGRAM, QD
     Route: 065
  50. GABAPENTIN [Concomitant]
     Active Substance: GABAPENTIN
     Dosage: 300 MILLIGRAM, QD
  51. GABAPENTIN [Concomitant]
     Active Substance: GABAPENTIN
     Dosage: 300 MILLIGRAM, QD
  52. GABAPENTIN [Concomitant]
     Active Substance: GABAPENTIN
     Dosage: 300 MILLIGRAM, QD
     Route: 065
  53. GABAPENTIN [Concomitant]
     Active Substance: GABAPENTIN
     Route: 065
  54. GABAPENTIN [Concomitant]
     Active Substance: GABAPENTIN
  55. GABAPENTIN [Concomitant]
     Active Substance: GABAPENTIN
  56. GABAPENTIN [Concomitant]
     Active Substance: GABAPENTIN
     Route: 065

REACTIONS (5)
  - Obsessive-compulsive disorder [Recovered/Resolved]
  - Suicidal ideation [Recovered/Resolved]
  - Delusion [Recovered/Resolved]
  - Sexual abuse [Recovered/Resolved]
  - Treatment failure [Unknown]
